FAERS Safety Report 4429243-8 (Version None)
Quarter: 2004Q3

REPORT INFORMATION
  Report Type: 
  Country: None (occurrence: None)
  Receive Date: 20040817
  Receipt Date: 20040817
  Transmission Date: 20050211
  Serious: Yes (Other)
  Sender: FDA-Public Use
  Company Number: None

PATIENT

DRUGS (3)
  1. ZOLOFT [Suspect]
     Indication: DEPRESSION
     Dosage: 100 MG DAY
     Dates: start: 20040601, end: 20040820
  2. ZOLOFT [Suspect]
     Indication: SLEEP DISORDER
     Dosage: 100 MG DAY
     Dates: start: 20040601, end: 20040820
  3. ATIVAN [Suspect]
     Indication: ANXIETY
     Dosage: 10 MG AS NEEDED

REACTIONS (6)
  - ANXIETY [None]
  - HYPERSOMNIA [None]
  - SELF MUTILATION [None]
  - SLEEP DISORDER [None]
  - SOMNOLENCE [None]
  - SUICIDAL IDEATION [None]
